FAERS Safety Report 8100195-2 (Version None)
Quarter: 2012Q1

REPORT INFORMATION
  Report Type: 
  Country: None (occurrence: None)
  Receive Date: 20120129
  Receipt Date: 20111121
  Transmission Date: 20120608
  Serious: Yes (Hospitalization)
  Sender: FDA-Public Use
  Company Number: US-ABBOTT-11P-163-0854953-00

PATIENT
  Sex: Male
  Weight: 77.18 kg

DRUGS (10)
  1. TOPROL-XL [Concomitant]
     Indication: CARDIOVASCULAR DISORDER
  2. EZOTMIBE [Concomitant]
     Indication: CARDIOVASCULAR DISORDER
     Dosage: 10 MG DAILY
  3. METOPROLOL TARTRATE [Concomitant]
     Indication: PRODUCT USED FOR UNKNOWN INDICATION
     Dosage: 50 MG DAILY
  4. ROSUVASTATIC [Concomitant]
     Indication: PRODUCT USED FOR UNKNOWN INDICATION
     Dosage: Q DAY
  5. FOLIC ACID [Concomitant]
     Indication: PRODUCT USED FOR UNKNOWN INDICATION
  6. ASPIRIN [Concomitant]
     Indication: PRODUCT USED FOR UNKNOWN INDICATION
     Dosage: 325 Q DAY
  7. HUMIRA [Suspect]
     Indication: PSORIASIS
     Route: 058
     Dates: start: 20110301
  8. CRESTOR [Concomitant]
     Indication: BLOOD CHOLESTEROL
  9. HYDROCHLOROTHIAZIDE [Concomitant]
     Indication: PRODUCT USED FOR UNKNOWN INDICATION
     Dosage: 12.5 MG Q DAY
  10. LISINOPRIL [Concomitant]
     Indication: CARDIOVASCULAR DISORDER

REACTIONS (2)
  - PSORIASIS [None]
  - ATRIAL FIBRILLATION [None]
